FAERS Safety Report 16995180 (Version 2)
Quarter: 2019Q4

REPORT INFORMATION
  Report Type: Spontaneous
  Country: GR (occurrence: GR)
  Receive Date: 20191105
  Receipt Date: 20191205
  Transmission Date: 20200122
  Serious: Yes (Other)
  Sender: FDA-Public Use
  Company Number: GR-MYLANLABS-2019M1104399

PATIENT
  Age: 75 Year
  Sex: Female

DRUGS (1)
  1. AMLODIPINE [Suspect]
     Active Substance: AMLODIPINE BESYLATE
     Indication: HYPERTENSION
     Dosage: UNK
     Route: 065

REACTIONS (11)
  - Bone disorder [Unknown]
  - Arthralgia [Unknown]
  - Blood calcium increased [Unknown]
  - Osteoarthritis [Unknown]
  - Synostosis [Unknown]
  - Blood alkaline phosphatase increased [Unknown]
  - Intervertebral disc space narrowing [Unknown]
  - Scoliosis [Unknown]
  - Osteolysis [Unknown]
  - Spinal pain [Unknown]
  - Osteitis deformans [Unknown]
